FAERS Safety Report 14113523 (Version 1)
Quarter: 2017Q4

REPORT INFORMATION
  Report Type: Spontaneous
  Country: US (occurrence: US)
  Receive Date: 20171022
  Receipt Date: 20171022
  Transmission Date: 20180321
  Serious: Yes (Hospitalization)
  Sender: FDA-Public Use
  Company Number: None

PATIENT
  Age: 18 Year
  Sex: Female
  Weight: 163 kg

DRUGS (2)
  1. BREXPIPRAZOLE [Suspect]
     Active Substance: BREXPIPRAZOLE
  2. BUPROPION. [Concomitant]
     Active Substance: BUPROPION

REACTIONS (3)
  - Pancreatic pseudocyst [None]
  - Solid pseudopapillary tumour of the pancreas [None]
  - Pancreatitis [None]

NARRATIVE: CASE EVENT DATE: 20171021
